FAERS Safety Report 7812509-9 (Version None)
Quarter: 2011Q4

REPORT INFORMATION
  Report Type: 
  Country: None (occurrence: None)
  Receive Date: 20111013
  Receipt Date: 20111011
  Transmission Date: 20120403
  Serious: No
  Sender: FDA-Public Use
  Company Number: US-B.I. PHARMACEUTICALS,INC./RIDGEFIELD-2011-BP-24038BP

PATIENT
  Sex: Female

DRUGS (3)
  1. TOPROL-XL [Concomitant]
     Indication: DEPRESSION
     Dosage: 100 MG
     Route: 048
  2. SERTRALINE HYDROCHLORIDE [Concomitant]
     Indication: DEPRESSION
     Dosage: 50 MG
     Route: 048
  3. PRADAXA [Suspect]
     Indication: ATRIAL FIBRILLATION
     Dosage: 300 MG
     Route: 048
     Dates: start: 20110919

REACTIONS (2)
  - HEART RATE INCREASED [None]
  - HEADACHE [None]
